FAERS Safety Report 7312404-8 (Version None)
Quarter: 2011Q1

REPORT INFORMATION
  Report Type: 
  Country: None (occurrence: None)
  Receive Date: 20110224
  Receipt Date: 20110222
  Transmission Date: 20110831
  Serious: Yes (Hospitalization, Other)
  Sender: FDA-Public Use
  Company Number: US-BAYER-2011-017521

PATIENT
  Sex: Female

DRUGS (2)
  1. OCELLA [Suspect]
     Dosage: UNK
     Route: 048
     Dates: start: 20090301, end: 20090630
  2. YASMIN [Suspect]
     Dosage: UNK
     Route: 048
     Dates: start: 20080201, end: 20090301

REACTIONS (3)
  - INJURY [None]
  - GALLBLADDER DISORDER [None]
  - PAIN [None]
